FAERS Safety Report 24657834 (Version 3)
Quarter: 2025Q1

REPORT INFORMATION
  Report Type: Report from Study
  Country: CA (occurrence: CA)
  Receive Date: 20241125
  Receipt Date: 20250120
  Transmission Date: 20250408
  Serious: Yes (Hospitalization)
  Sender: TAKEDA
  Company Number: CA-TAKEDA-2019TUS039771

PATIENT
  Age: 40 Year
  Sex: Female

DRUGS (19)
  1. VEDOLIZUMAB [Suspect]
     Active Substance: VEDOLIZUMAB
     Indication: Colitis ulcerative
  2. VEDOLIZUMAB [Suspect]
     Active Substance: VEDOLIZUMAB
     Dosage: 300 MILLIGRAM, Q4WEEKS
     Dates: start: 20200310
  3. VEDOLIZUMAB [Suspect]
     Active Substance: VEDOLIZUMAB
     Dosage: 300 MILLIGRAM, Q4WEEKS
  4. VEDOLIZUMAB [Suspect]
     Active Substance: VEDOLIZUMAB
     Indication: Colitis ulcerative
     Dosage: 108 MILLIGRAM, Q2WEEKS
     Dates: start: 20240712
  5. SYNTHROID [Concomitant]
     Active Substance: LEVOTHYROXINE SODIUM
  6. SEROQUEL [Concomitant]
     Active Substance: QUETIAPINE FUMARATE
  7. CLONAZEPAM [Concomitant]
     Active Substance: CLONAZEPAM
  8. ALESSE 28 [Concomitant]
     Active Substance: ETHINYL ESTRADIOL\LEVONORGESTREL
     Indication: Migraine
  9. SOMINEX [Concomitant]
     Active Substance: DIPHENHYDRAMINE HYDROCHLORIDE
  10. VITAMIN D [Concomitant]
     Active Substance: VITAMIN D NOS
  11. SERTRALINE [Concomitant]
     Active Substance: SERTRALINE HYDROCHLORIDE
  12. SUMATRIPTAN [Concomitant]
     Active Substance: SUMATRIPTAN
  13. CETIRIZINE [Concomitant]
     Active Substance: CETIRIZINE HYDROCHLORIDE
  14. ZOLOFT [Concomitant]
     Active Substance: SERTRALINE HYDROCHLORIDE
  15. AVIANE [Concomitant]
     Active Substance: ETHINYL ESTRADIOL\LEVONORGESTREL
  16. FLUTICASONE FUROATE [Concomitant]
     Active Substance: FLUTICASONE FUROATE
  17. OLANZAPINE [Concomitant]
     Active Substance: OLANZAPINE
  18. TOPIRAMATE [Concomitant]
     Active Substance: TOPIRAMATE
  19. CALCIUM CARBONATE\ERGOCALCIFEROL [Concomitant]
     Active Substance: CALCIUM CARBONATE\ERGOCALCIFEROL

REACTIONS (5)
  - Psychotic disorder [Not Recovered/Not Resolved]
  - Contusion [Unknown]
  - Poor venous access [Unknown]
  - Off label use [Unknown]
  - Victim of abuse [Unknown]

NARRATIVE: CASE EVENT DATE: 20190621
